FAERS Safety Report 17190488 (Version 1)
Quarter: 2019Q4

REPORT INFORMATION
  Report Type: Spontaneous
  Country: AT (occurrence: AT)
  Receive Date: 20191223
  Receipt Date: 20191223
  Transmission Date: 20200122
  Serious: Yes (Other)
  Sender: FDA-Public Use
  Company Number: AT-ALKEM LABORATORIES LIMITED-AT-ALKEM-2019-03148

PATIENT
  Age: 8 Year
  Sex: Female

DRUGS (4)
  1. IMMUNOGLOBULIN G [Concomitant]
     Active Substance: HUMAN IMMUNOGLOBULIN G
     Indication: IMMUNE THROMBOCYTOPENIC PURPURA
     Dosage: (0.5 G/KG)
     Route: 042
  2. ROMIPLOSTIM [Concomitant]
     Active Substance: ROMIPLOSTIM
     Indication: HAEMORRHAGE
     Dosage: (85?170 ?G/M2)
     Route: 065
  3. MYCOPHENOLATE MOFETIL. [Suspect]
     Active Substance: MYCOPHENOLATE MOFETIL
     Indication: PRODUCT USED FOR UNKNOWN INDICATION
     Dosage: 1200 MG/M2, OD
     Route: 065
  4. RITUXIMAB. [Concomitant]
     Active Substance: RITUXIMAB
     Indication: HAEMORRHAGE
     Dosage: (4 ? 375 MG/M2 ; CYCLICAL)
     Route: 065

REACTIONS (2)
  - Secondary immunodeficiency [Recovered/Resolved]
  - Cytomegalovirus infection [Recovered/Resolved]
